FAERS Safety Report 8903532 (Version 1)
Quarter: 2012Q4

REPORT INFORMATION
  Report Type: 
  Country: US (occurrence: US)
  Receive Date: 20121113
  Receipt Date: 20121113
  Transmission Date: 20130627
  Serious: No
  Sender: FDA-Public Use
  Company Number: US-PFIZER INC-2012283031

PATIENT
  Sex: Female

DRUGS (2)
  1. CHANTIX [Suspect]
     Dosage: UNK
  2. BIOTIN [Suspect]
     Indication: SUPPLEMENTATION THERAPY
     Dosage: UNK

REACTIONS (6)
  - Nausea [Unknown]
  - Feeling abnormal [Unknown]
  - Malaise [Unknown]
  - Blood pressure increased [Unknown]
  - Hot flush [Unknown]
  - Paraesthesia [Unknown]
